FAERS Safety Report 20768020 (Version 1)
Quarter: 2022Q2

REPORT INFORMATION
  Report Type: Spontaneous
  Country: NL (occurrence: NL)
  Receive Date: 20220429
  Receipt Date: 20220429
  Transmission Date: 20220721
  Serious: Yes (Life-Threatening)
  Sender: FDA-Public Use
  Company Number: None

PATIENT
  Age: 68 Year
  Sex: Female
  Weight: 52.6 kg

DRUGS (1)
  1. BEVACIZUMAB [Suspect]
     Active Substance: BEVACIZUMAB
     Indication: Colon cancer
     Dosage: ONCE OFF, 400 MG IN 100 ML NACL
     Route: 065
     Dates: start: 20220317, end: 20220317

REACTIONS (1)
  - Chondronecrosis [Not Recovered/Not Resolved]

NARRATIVE: CASE EVENT DATE: 20220410
